FAERS Safety Report 13021246 (Version 1)
Quarter: 2016Q4

REPORT INFORMATION
  Report Type: Spontaneous
  Country: US (occurrence: US)
  Receive Date: 20161212
  Receipt Date: 20161212
  Transmission Date: 20170207
  Serious: No
  Sender: FDA-Public Use
  Company Number: None

PATIENT
  Age: 76 Year
  Sex: Female

DRUGS (1)
  1. IBRANCE [Suspect]
     Active Substance: PALBOCICLIB
     Indication: BREAST CANCER
     Dosage: 125MG DAILY FOR 3 WEEKS 1 WEK PO
     Route: 048
     Dates: start: 20161102

REACTIONS (2)
  - Fatigue [None]
  - White blood cell count decreased [None]

NARRATIVE: CASE EVENT DATE: 20161109
